FAERS Safety Report 25243073 (Version 1)
Quarter: 2025Q2

REPORT INFORMATION
  Report Type: Spontaneous
  Country: US (occurrence: US)
  Receive Date: 20250428
  Receipt Date: 20250428
  Transmission Date: 20250717
  Serious: No
  Sender: PRINSTON PHARMACEUTICAL
  Company Number: US-PRINSTON PHARMACEUTICAL INC.-2025PRN00074

PATIENT
  Sex: Female
  Weight: 47.627 kg

DRUGS (1)
  1. NEBIVOLOL [Suspect]
     Active Substance: NEBIVOLOL
     Indication: Heart rate decreased
     Dosage: 2.5 MG, 1X/DAY
     Dates: start: 202501

REACTIONS (1)
  - Brain fog [Not Recovered/Not Resolved]
